FAERS Safety Report 5078104-2 (Version None)
Quarter: 2006Q3

REPORT INFORMATION
  Report Type: 
  Country: None (occurrence: None)
  Receive Date: 20060720
  Receipt Date: 20060405
  Transmission Date: 20061208
  Serious: Yes (Life-Threatening)
  Sender: FDA-Public Use
  Company Number: 2006MP000541

PATIENT
  Age: 52 Year
  Sex: Male

DRUGS (3)
  1. AGGRASTAT [Suspect]
     Indication: ACUTE CORONARY SYNDROME
     Dosage: IV
     Route: 042
     Dates: start: 20060401, end: 20060402
  2. HEPARIN [Suspect]
     Dosage: 14000 IU;X1;
     Dates: start: 20060401, end: 20060401
  3. HEPARIN [Suspect]
     Dosage: 700 IU;QH;
     Dates: start: 20060401, end: 20060402

REACTIONS (1)
  - THROMBOCYTOPENIA [None]
